FAERS Safety Report 15585774 (Version 2)
Quarter: 2019Q1

REPORT INFORMATION
  Report Type: Spontaneous
  Country: US (occurrence: US)
  Receive Date: 20181105
  Receipt Date: 20190121
  Transmission Date: 20190417
  Serious: Yes (Hospitalization, Other)
  Sender: FDA-Public Use
  Company Number: US-DSJP-DSU-2017-139342

PATIENT

DRUGS (3)
  1. BENICAR [Suspect]
     Active Substance: OLMESARTAN MEDOXOMIL
     Dosage: 20 MG, UNK
  2. BENICAR [Suspect]
     Active Substance: OLMESARTAN MEDOXOMIL
     Dosage: 5 MG, UNK
  3. BENICAR [Suspect]
     Active Substance: OLMESARTAN MEDOXOMIL
     Indication: PRODUCT USED FOR UNKNOWN INDICATION
     Dosage: 20 MG HALF TABLET, QD
     Route: 048
     Dates: start: 20040101, end: 20151231

REACTIONS (6)
  - Gastric disorder [Unknown]
  - Sprue-like enteropathy [Recovering/Resolving]
  - Product administration error [Recovered/Resolved]
  - Hiatus hernia [Unknown]
  - Overgrowth bacterial [Unknown]
  - Gastric polyps [Unknown]

NARRATIVE: CASE EVENT DATE: 20040101
